FAERS Safety Report 14284678 (Version 6)
Quarter: 2018Q3

REPORT INFORMATION
  Report Type: Spontaneous
  Country: JP (occurrence: JP)
  Receive Date: 20171214
  Receipt Date: 20180703
  Transmission Date: 20181010
  Serious: Yes (Life-Threatening, Hospitalization, Other)
  Sender: FDA-Public Use
  Company Number: JP-BRISTOL-MYERS SQUIBB COMPANY-BMS-2017-113040

PATIENT
  Age: 74 Year
  Sex: Female

DRUGS (3)
  1. AMVALO [Concomitant]
     Indication: PRODUCT USED FOR UNKNOWN INDICATION
     Route: 065
  2. VIVIANT [Suspect]
     Active Substance: BAZEDOXIFENE
     Indication: OSTEOPOROSIS
     Dosage: 20 MG, UNK
     Route: 048
  3. OPDIVO [Suspect]
     Active Substance: NIVOLUMAB
     Indication: MALIGNANT MELANOMA
     Dosage: 2 MG/KG, UNK
     Route: 041
     Dates: start: 20171030, end: 20171124

REACTIONS (2)
  - Deep vein thrombosis [Recovered/Resolved]
  - Pulmonary artery thrombosis [Recovered/Resolved]

NARRATIVE: CASE EVENT DATE: 20171129
